FAERS Safety Report 6307975-4 (Version None)
Quarter: 2009Q3

REPORT INFORMATION
  Report Type: 
  Country: None (occurrence: None)
  Receive Date: 20090813
  Receipt Date: 20090803
  Transmission Date: 20100115
  Serious: No
  Sender: FDA-Public Use
  Company Number: NZ-ASTRAZENECA-2009SE06586

PATIENT
  Age: 619 Month
  Sex: Female

DRUGS (1)
  1. OMEPRAZOLE [Suspect]
     Route: 048
     Dates: start: 20001101, end: 20010206

REACTIONS (2)
  - ARTHRALGIA [None]
  - DIZZINESS [None]
